FAERS Safety Report 23191428 (Version 5)
Quarter: 2024Q1

REPORT INFORMATION
  Report Type: Spontaneous
  Country: US (occurrence: US)
  Receive Date: 20231116
  Receipt Date: 20240326
  Transmission Date: 20240409
  Serious: Yes (Hospitalization, Other)
  Sender: FDA-Public Use
  Company Number: US-SA-SAC20231114001435

PATIENT
  Age: 39 Year
  Sex: Male
  Weight: 131.5 kg

DRUGS (21)
  1. DUPIXENT [Suspect]
     Active Substance: DUPILUMAB
     Indication: Dermatitis atopic
     Dosage: 600 MG, 1X
     Dates: start: 20230724, end: 20230724
  2. DUPIXENT [Suspect]
     Active Substance: DUPILUMAB
     Indication: Depression
     Dosage: 300 MG, QOW
     Route: 058
     Dates: start: 20230809, end: 20231015
  3. DUPIXENT [Suspect]
     Active Substance: DUPILUMAB
     Indication: Alopecia areata
     Dosage: 300 MG, QOW
     Route: 058
     Dates: start: 20231204, end: 20231204
  4. DUPIXENT [Suspect]
     Active Substance: DUPILUMAB
     Indication: Essential hypertension
     Dosage: UNK
  5. DUPIXENT [Suspect]
     Active Substance: DUPILUMAB
     Indication: Anxiety disorder
  6. PRILOSEC [Concomitant]
     Active Substance: OMEPRAZOLE MAGNESIUM
  7. TACROLIMUS [Concomitant]
     Active Substance: TACROLIMUS
  8. ZYRTEC [Concomitant]
     Active Substance: CETIRIZINE HYDROCHLORIDE
  9. VENLAFAXINE HCL [Concomitant]
     Active Substance: VENLAFAXINE HYDROCHLORIDE
  10. VALTREX [Concomitant]
     Active Substance: VALACYCLOVIR HYDROCHLORIDE
  11. AZELASTINE HYDROCHLORIDE [Concomitant]
     Active Substance: AZELASTINE HYDROCHLORIDE
  12. CLINDAMYCIN PHOSPHATE [Concomitant]
     Active Substance: CLINDAMYCIN PHOSPHATE
  13. CLOBETASOL PROPIONATE [Concomitant]
     Active Substance: CLOBETASOL PROPIONATE
  14. TRETINOIN [Concomitant]
     Active Substance: TRETINOIN
  15. LISINOPRIL [Concomitant]
     Active Substance: LISINOPRIL
  16. VITAMIN D2 [Concomitant]
     Active Substance: ERGOCALCIFEROL
  17. ALPRAZOLAM [Concomitant]
     Active Substance: ALPRAZOLAM
  18. HYDROCORTISONE [Concomitant]
     Active Substance: HYDROCORTISONE
  19. BUPROPION [Concomitant]
     Active Substance: BUPROPION
  20. TADALAFIL [Concomitant]
     Active Substance: TADALAFIL
  21. BEACONS [Concomitant]

REACTIONS (12)
  - Pneumonia [Not Recovered/Not Resolved]
  - Cough [Unknown]
  - Pyrexia [Unknown]
  - Swelling [Unknown]
  - Pruritus [Unknown]
  - Erythema nodosum [Not Recovered/Not Resolved]
  - Contusion [Not Recovered/Not Resolved]
  - Skin swelling [Not Recovered/Not Resolved]
  - Skin lesion [Not Recovered/Not Resolved]
  - Arthralgia [Not Recovered/Not Resolved]
  - Rash pruritic [Unknown]
  - Product use in unapproved indication [Unknown]

NARRATIVE: CASE EVENT DATE: 20230101
